FAERS Safety Report 7113573-5 (Version None)
Quarter: 2010Q4

REPORT INFORMATION
  Report Type: 
  Country: None (occurrence: None)
  Receive Date: 20101119
  Receipt Date: 20101111
  Transmission Date: 20110411
  Serious: Yes (Hospitalization)
  Sender: FDA-Public Use
  Company Number: CO-ROCHE-728819

PATIENT
  Sex: Female

DRUGS (4)
  1. ACTEMRA [Suspect]
     Indication: RHEUMATOID ARTHRITIS
     Dosage: FREQUENCY REPORTED AS Q28DAYS
     Route: 042
     Dates: start: 20100823
  2. METHOTREXATE [Concomitant]
     Indication: RHEUMATOID ARTHRITIS
     Dosage: FREQUENCY REPORTED AS QWEEK
     Route: 048
  3. MEDROL [Concomitant]
     Indication: RHEUMATOID ARTHRITIS
     Dosage: FREQUENCY REPORTED AS QD
     Route: 048
  4. ACETAMINOPHEN [Concomitant]
     Indication: PAIN
     Dosage: FREQUENCY REPORTED AS PRN
     Route: 048

REACTIONS (3)
  - ARTHRALGIA [None]
  - HYPERTENSION [None]
  - RASH [None]
